FAERS Safety Report 9872321 (Version 2)
Quarter: 2014Q1

REPORT INFORMATION
  Report Type: Report from Study
  Country: CA (occurrence: CA)
  Receive Date: 20140205
  Receipt Date: 20140205
  Transmission Date: 20141002
  Serious: Yes (Other)
  Sender: FDA-Public Use
  Company Number: CA-ROCHE-1203371

PATIENT
  Age: 76 Year
  Sex: Female
  Weight: 51.7 kg

DRUGS (7)
  1. RITUXAN [Suspect]
     Indication: GRANULOMATOSIS WITH POLYANGIITIS
     Dosage: MOST RECENT INFUSION TAKEN : 17/JUN/2011, 17/APR/2013.
     Route: 042
     Dates: start: 2011
  2. PRIMIDONE [Concomitant]
  3. APOCAL [Concomitant]
  4. OMEPRAZOLE [Concomitant]
  5. PREDNISONE [Concomitant]
  6. ALENDRONATE [Concomitant]
  7. AZATHIOPRINE [Concomitant]

REACTIONS (3)
  - Eye degenerative disorder [Unknown]
  - Pain [Not Recovered/Not Resolved]
  - Discomfort [Not Recovered/Not Resolved]
